FAERS Safety Report 13038584 (Version 1)
Quarter: 2016Q4

REPORT INFORMATION
  Report Type: Spontaneous
  Country: US (occurrence: US)
  Receive Date: 20161219
  Receipt Date: 20161219
  Transmission Date: 20170207
  Serious: Yes (Other)
  Sender: FDA-Public Use
  Company Number: US-ROCHE-1867356

PATIENT
  Age: 52 Year
  Sex: Male
  Weight: 71.73 kg

DRUGS (1)
  1. RITUXAN [Suspect]
     Active Substance: RITUXIMAB
     Indication: PLASMABLASTIC LYMPHOMA
     Route: 042
     Dates: start: 201610, end: 201611

REACTIONS (3)
  - Weight decreased [Recovered/Resolved]
  - Pollakiuria [Recovered/Resolved with Sequelae]
  - Sleep disorder [Recovered/Resolved]

NARRATIVE: CASE EVENT DATE: 201610
